FAERS Safety Report 16072747 (Version 2)
Quarter: 2019Q2

REPORT INFORMATION
  Report Type: Spontaneous
  Country: JP (occurrence: JP)
  Receive Date: 20190314
  Receipt Date: 20190416
  Transmission Date: 20190711
  Serious: No
  Sender: FDA-Public Use
  Company Number: JP-ELI_LILLY_AND_COMPANY-JP201903006208

PATIENT
  Age: 88 Year
  Sex: Female

DRUGS (2)
  1. FORTEO [Suspect]
     Active Substance: TERIPARATIDE
     Indication: OSTEOPOROSIS
     Dosage: 20 UG, DAILY
     Route: 058
     Dates: start: 20190213, end: 20190220
  2. CALCICOL [Concomitant]
     Active Substance: CALCIUM GLUCONATE

REACTIONS (2)
  - Nausea [Unknown]
  - Blood potassium increased [Recovered/Resolved]

NARRATIVE: CASE EVENT DATE: 20190220
